FAERS Safety Report 6956746-4 (Version None)
Quarter: 2010Q3

REPORT INFORMATION
  Report Type: 
  Country: None (occurrence: None)
  Receive Date: 20100830
  Receipt Date: 20100405
  Transmission Date: 20110219
  Serious: No
  Sender: FDA-Public Use
  Company Number: US-BAUSCH-2010BL001852

PATIENT
  Age: 23 Year
  Sex: Female

DRUGS (1)
  1. TROPICAMIDE [Suspect]
     Indication: DIAGNOSTIC PROCEDURE
     Route: 047
     Dates: start: 20100301, end: 20100301

REACTIONS (3)
  - CONDITION AGGRAVATED [None]
  - INTRAOCULAR PRESSURE INCREASED [None]
  - PHOTOPSIA [None]
